FAERS Safety Report 6239288-3 (Version None)
Quarter: 2009Q2

REPORT INFORMATION
  Report Type: 
  Country: None (occurrence: None)
  Receive Date: 20090618
  Receipt Date: 20090618
  Transmission Date: 20091009
  Serious: No
  Sender: FDA-Public Use
  Company Number: None

PATIENT
  Age: 42 Year
  Sex: Male
  Weight: 92.0802 kg

DRUGS (1)
  1. ZICAM NASAL SPRAY MAXIMUM STRENGTH ZICAM [Suspect]
     Indication: NASOPHARYNGITIS
     Dosage: ON SHOT IN EACH N OSTRIL EVERY 4 HOURS NASAL
     Route: 045
     Dates: start: 20050101, end: 20090614

REACTIONS (3)
  - EMOTIONAL DISORDER [None]
  - HYPOSMIA [None]
  - PRODUCT LABEL ISSUE [None]
